FAERS Safety Report 5853516-5 (Version None)
Quarter: 2008Q3

REPORT INFORMATION
  Report Type: 
  Country: None (occurrence: None)
  Receive Date: 20080822
  Receipt Date: 20080811
  Transmission Date: 20090109
  Serious: Yes (Hospitalization)
  Sender: FDA-Public Use
  Company Number: BE-JNJFOC-20080802309

PATIENT
  Age: 59 Year
  Sex: Male

DRUGS (2)
  1. REMICADE [Suspect]
     Route: 042
  2. REMICADE [Suspect]
     Indication: ANKYLOSING SPONDYLITIS
     Route: 042

REACTIONS (10)
  - COLONIC OBSTRUCTION [None]
  - DIVERTICULITIS [None]
  - ESCHERICHIA INFECTION [None]
  - HAEMOTHORAX [None]
  - HERPES SIMPLEX [None]
  - PNEUMONIA KLEBSIELLA [None]
  - PROTEUS INFECTION [None]
  - RENAL FAILURE [None]
  - RENAL TUBULAR NECROSIS [None]
  - SPLENIC RUPTURE [None]
